FAERS Safety Report 16955658 (Version 2)
Quarter: 2019Q4

REPORT INFORMATION
  Report Type: Spontaneous
  Country: US (occurrence: US)
  Receive Date: 20191024
  Receipt Date: 20191220
  Transmission Date: 20200122
  Serious: No
  Sender: FDA-Public Use
  Company Number: US-PFIZER INC-2019456344

PATIENT
  Age: 70 Year
  Sex: Female
  Weight: 73.7 kg

DRUGS (3)
  1. LETROZOLE. [Concomitant]
     Active Substance: LETROZOLE
     Dosage: UNK
  2. AFINITOR [Concomitant]
     Active Substance: EVEROLIMUS
     Dosage: 7.5 MG, UNK
     Dates: start: 201909
  3. IBRANCE [Suspect]
     Active Substance: PALBOCICLIB
     Indication: BREAST CANCER METASTATIC
     Dosage: 100 MG, UNK

REACTIONS (1)
  - Neoplasm progression [Unknown]
